FAERS Safety Report 5711275-0 (Version None)
Quarter: 2008Q2

REPORT INFORMATION
  Report Type: 
  Country: None (occurrence: None)
  Receive Date: 20080418
  Receipt Date: 20080418
  Transmission Date: 20081010
  Serious: Yes (Hospitalization)
  Sender: FDA-Public Use
  Company Number: None

PATIENT
  Age: 65 Year
  Sex: Female
  Weight: 114 kg

DRUGS (17)
  1. BACTRIM DS [Suspect]
     Indication: URINARY TRACT INFECTION
     Dosage: PO
     Route: 048
  2. ADVAIR HFA [Concomitant]
  3. ALLOPURINOL [Concomitant]
  4. BUMEX [Concomitant]
  5. COREG [Concomitant]
  6. DIGOXIN [Concomitant]
  7. ENALAPRIL MALEATE [Concomitant]
  8. FELODIPINE [Concomitant]
  9. HUMALOG [Concomitant]
  10. LANTUS [Concomitant]
  11. LEXAPRO [Concomitant]
  12. NORVASC [Concomitant]
  13. PERCOCET [Concomitant]
  14. POTASSIUM CHLORIDE [Concomitant]
  15. SPIRONOLACTONE [Concomitant]
  16. WARFARIN SODIUM [Concomitant]
  17. ZOCOR [Concomitant]

REACTIONS (6)
  - DYSPNOEA [None]
  - FATIGUE [None]
  - HYPERKALAEMIA [None]
  - PYREXIA [None]
  - RENAL FAILURE ACUTE [None]
  - RETCHING [None]
